FAERS Safety Report 9312005 (Version 1)
Quarter: 2013Q2

REPORT INFORMATION
  Report Type: Spontaneous
  Country: US (occurrence: US)
  Receive Date: 20130528
  Receipt Date: 20130528
  Transmission Date: 20140414
  Serious: No
  Sender: FDA-Public Use
  Company Number: US-ROXANE LABORATORIES, INC.-2013-RO-00826RO

PATIENT
  Age: 6 Year
  Sex: Male

DRUGS (1)
  1. FLUTICASONE [Suspect]
     Indication: SINUSITIS
     Route: 045
     Dates: start: 20130514, end: 20130516

REACTIONS (2)
  - Headache [Recovered/Resolved]
  - Product quality issue [Recovered/Resolved]
